FAERS Safety Report 16897815 (Version 1)
Quarter: 2019Q4

REPORT INFORMATION
  Report Type: Spontaneous
  Country: US (occurrence: US)
  Receive Date: 20191009
  Receipt Date: 20191009
  Transmission Date: 20200122
  Serious: Yes (Other)
  Sender: FDA-Public Use
  Company Number: US-SUN PHARMACEUTICAL INDUSTRIES LTD-2019R1-222877

PATIENT
  Sex: Female

DRUGS (1)
  1. AMBRISENTAN [Suspect]
     Active Substance: AMBRISENTAN
     Indication: PRODUCT USED FOR UNKNOWN INDICATION
     Dosage: 10 MILLIGRAM, QD
     Route: 048
     Dates: start: 20190905

REACTIONS (5)
  - Dyspnoea [Unknown]
  - Visual impairment [Unknown]
  - Hypopnoea [Unknown]
  - Fatigue [Unknown]
  - Sluggishness [Unknown]

NARRATIVE: CASE EVENT DATE: 2019
